FAERS Safety Report 17893191 (Version 2)
Quarter: 2020Q3

REPORT INFORMATION
  Report Type: Report from Study
  Country: BR (occurrence: BR)
  Receive Date: 20200614
  Receipt Date: 20200912
  Transmission Date: 20201103
  Serious: Yes (Death, Hospitalization, Other)
  Sender: FDA-Public Use
  Company Number: PHHY2019BR202488

PATIENT
  Age: 77 Year
  Sex: Female

DRUGS (3)
  1. COSENTYX [Suspect]
     Active Substance: SECUKINUMAB
     Indication: RHEUMATOID ARTHRITIS
     Dosage: 300 MG, QMO
     Route: 058
     Dates: start: 20181214, end: 20200207
  2. COSENTYX [Suspect]
     Active Substance: SECUKINUMAB
     Indication: PSORIASIS
  3. COSENTYX [Suspect]
     Active Substance: SECUKINUMAB
     Indication: PSORIATIC ARTHROPATHY
     Dosage: 150 MG, QMO
     Route: 065

REACTIONS (15)
  - Liver injury [Not Recovered/Not Resolved]
  - Neck pain [Not Recovered/Not Resolved]
  - Gastric haemorrhage [Unknown]
  - Femur fracture [Recovering/Resolving]
  - Hepatitis C [Unknown]
  - Procedural pain [Unknown]
  - Fall [Recovered/Resolved with Sequelae]
  - Lower limb fracture [Unknown]
  - Pain [Recovering/Resolving]
  - Liver disorder [Fatal]
  - Arthritis [Not Recovered/Not Resolved]
  - Enthesopathy [Recovering/Resolving]
  - Product use in unapproved indication [Unknown]
  - Skin disorder [Recovering/Resolving]
  - Musculoskeletal stiffness [Recovered/Resolved]

NARRATIVE: CASE EVENT DATE: 20191211
